FAERS Safety Report 9970165 (Version 1)
Quarter: 2014Q1

REPORT INFORMATION
  Report Type: Spontaneous
  Country: US (occurrence: None)
  Receive Date: 20140218
  Receipt Date: 20140218
  Transmission Date: 20141002
  Serious: Yes (Hospitalization)
  Sender: FDA-Public Use
  Company Number: OMPQ-PR-1309S-1087

PATIENT
  Age: 50 Year
  Sex: Female

DRUGS (2)
  1. OMNIPAQUE [Suspect]
     Indication: PRODUCT USED FOR UNKNOWN INDICATION
     Dosage: DOSE NOT REPORTED, SINGLE DOSE, INTRAVENOUS
     Route: 042
     Dates: start: 20130331, end: 20130331
  2. OMNIPAQUE [Suspect]
     Indication: DIAGNOSTIC PROCEDURE
     Dosage: DOSE NOT REPORTED, SINGLE DOSE, INTRAVENOUS
     Route: 042
     Dates: start: 20130331, end: 20130331

REACTIONS (1)
  - Hypersensitivity [None]
